FAERS Safety Report 19651215 (Version 1)
Quarter: 2021Q3

REPORT INFORMATION
  Report Type: Spontaneous
  Country: US (occurrence: US)
  Receive Date: 20210803
  Receipt Date: 20210803
  Transmission Date: 20211014
  Serious: Yes (Other)
  Sender: FDA-Public Use
  Company Number: None

PATIENT
  Age: 27 Year
  Sex: Female
  Weight: 95.85 kg

DRUGS (11)
  1. LORYNA [Concomitant]
     Active Substance: DROSPIRENONE\ETHINYL ESTRADIOL
  2. PROBIOTIC [Concomitant]
     Active Substance: PROBIOTICS NOS
  3. TRAZODONE [Concomitant]
     Active Substance: TRAZODONE HYDROCHLORIDE
  4. MULTIVITAMIN [Concomitant]
     Active Substance: VITAMINS
  5. VITAMIN B12 [Concomitant]
     Active Substance: CYANOCOBALAMIN
  6. LYSINE [Concomitant]
     Active Substance: LYSINE
  7. IRON [Concomitant]
     Active Substance: IRON
  8. CASIRIVIMAB AND IMDEVIMAB [Suspect]
     Active Substance: CASIRIVIMAB\IMDEVIMAB
     Indication: INFLUENZA A VIRUS TEST POSITIVE
     Dosage: ?          OTHER FREQUENCY:ONE INFUSION;?
     Route: 042
     Dates: start: 20210801, end: 20210801
  9. ADDERALL [Concomitant]
     Active Substance: AMPHETAMINE ASPARTATE\AMPHETAMINE SULFATE\DEXTROAMPHETAMINE SACCHARATE\DEXTROAMPHETAMINE SULFATE
  10. CASIRIVIMAB AND IMDEVIMAB [Suspect]
     Active Substance: CASIRIVIMAB\IMDEVIMAB
     Indication: SARS-COV-2 TEST POSITIVE
     Dosage: ?          OTHER FREQUENCY:ONE INFUSION;?
     Route: 042
     Dates: start: 20210801, end: 20210801
  11. LOSARTAN. [Concomitant]
     Active Substance: LOSARTAN

REACTIONS (3)
  - Swelling [None]
  - Rash [None]
  - Rash macular [None]

NARRATIVE: CASE EVENT DATE: 20210803
